FAERS Safety Report 5268170-3 (Version None)
Quarter: 2007Q1

REPORT INFORMATION
  Report Type: 
  Country: None (occurrence: None)
  Receive Date: 20070319
  Receipt Date: 20070306
  Transmission Date: 20070707
  Serious: Yes (Disabling)
  Sender: FDA-Public Use
  Company Number: PHEH2007US01350

PATIENT
  Age: 77 Year
  Sex: Female

DRUGS (3)
  1. FEMARA [Suspect]
     Indication: BREAST CANCER
     Dosage: 2.5 MG, QD
     Route: 048
     Dates: start: 20060925, end: 20070108
  2. NORVASC [Concomitant]
     Indication: HYPERTENSION
     Dosage: 10 MG, QD
     Route: 048
  3. DITROPAN [Concomitant]
     Indication: INCONTINENCE
     Dosage: 10 MG, QD
     Route: 048

REACTIONS (2)
  - DYSPNOEA [None]
  - TACHYPNOEA [None]
